FAERS Safety Report 5967502-8 (Version None)
Quarter: 2008Q4

REPORT INFORMATION
  Report Type: 
  Country: None (occurrence: None)
  Receive Date: 20081125
  Receipt Date: 20081119
  Transmission Date: 20090506
  Serious: Yes (Other)
  Sender: FDA-Public Use
  Company Number: US-PFIZER INC-2008077682

PATIENT
  Sex: Female

DRUGS (4)
  1. GLUCOTROL [Suspect]
  2. METFORMIN HCL [Suspect]
  3. NOVOLOG [Suspect]
  4. LANTUS [Suspect]

REACTIONS (3)
  - HYPERGLYCAEMIA [None]
  - HYPOGLYCAEMIA [None]
  - WEIGHT INCREASED [None]
